FAERS Safety Report 9452218 (Version 1)
Quarter: 2013Q3

REPORT INFORMATION
  Report Type: Spontaneous
  Country: US (occurrence: None)
  Receive Date: 20130808
  Receipt Date: 20130808
  Transmission Date: 20140515
  Serious: Yes (Death)
  Sender: FDA-Public Use
  Company Number: None

PATIENT
  Age: 69 Year
  Sex: Male
  Weight: 99.79 kg

DRUGS (1)
  1. AZITHROMYCIN [Suspect]
     Indication: SINUSITIS
     Dosage: 2 PILLS DAY ONE + 1 PILL OTHER   ONCE DAILY  TAKEN BY MOUTH
     Route: 048
     Dates: start: 20130222, end: 20130226

REACTIONS (1)
  - Loss of consciousness [None]
